FAERS Safety Report 5295662-3 (Version None)
Quarter: 2007Q2

REPORT INFORMATION
  Report Type: 
  Country: None (occurrence: None)
  Receive Date: 20070410
  Receipt Date: 20070410
  Transmission Date: 20071010
  Serious: Yes (Other)
  Sender: FDA-Public Use
  Company Number: None

PATIENT
  Age: 52 Year
  Sex: Male
  Weight: 67.586 kg

DRUGS (2)
  1. AMIFOSTINE [Suspect]
     Indication: NEOPLASM MALIGNANT
     Dosage: 500 MG SQ DAILY M-F X 18 DAY
     Route: 058
  2. RADIATION [Concomitant]

REACTIONS (5)
  - EYE SWELLING [None]
  - GRAFT COMPLICATION [None]
  - OCULAR HYPERAEMIA [None]
  - PRURITUS [None]
  - RASH MACULO-PAPULAR [None]
